FAERS Safety Report 14317083 (Version 1)
Quarter: 2017Q4

REPORT INFORMATION
  Report Type: Report from Study
  Country: US (occurrence: US)
  Receive Date: 20171222
  Receipt Date: 20171222
  Transmission Date: 20180321
  Serious: Yes (Disabling)
  Sender: FDA-Public Use
  Company Number: US-TESARO, INC-US-2017TSO04455

PATIENT

DRUGS (1)
  1. ZEJULA [Suspect]
     Active Substance: NIRAPARIB
     Indication: OVARIAN CANCER
     Dosage: 300 MG, QD
     Route: 048

REACTIONS (4)
  - Impaired quality of life [Not Recovered/Not Resolved]
  - Unevaluable event [Not Recovered/Not Resolved]
  - Walking disability [Not Recovered/Not Resolved]
  - Bedridden [Not Recovered/Not Resolved]
